FAERS Safety Report 5153438-1 (Version None)
Quarter: 2006Q4

REPORT INFORMATION
  Report Type: 
  Country: None (occurrence: None)
  Receive Date: 20061117
  Receipt Date: 20060621
  Transmission Date: 20070319
  Serious: Yes (Hospitalization)
  Sender: FDA-Public Use
  Company Number: AR-ABBOTT-06P-007-0336825-00

PATIENT
  Age: 61 Year
  Sex: Female
  Weight: 75 kg

DRUGS (6)
  1. HUMIRA [Suspect]
     Indication: RHEUMATOID ARTHRITIS
     Route: 058
     Dates: start: 20040101, end: 20060527
  2. HUMIRA [Suspect]
     Dates: start: 20061004
  3. METHOTREXATE [Concomitant]
     Indication: RHEUMATOID ARTHRITIS
     Route: 048
  4. METHOTREXATE [Concomitant]
  5. ENALAPRIL MALEATE [Concomitant]
     Indication: HYPERTENSION
     Route: 048
  6. LEVOTHYROXINE SODIUM [Concomitant]
     Indication: HYPOTHYROIDISM
     Route: 048

REACTIONS (3)
  - ADENOMATOUS POLYPOSIS COLI [None]
  - COLITIS ISCHAEMIC [None]
  - GASTROINTESTINAL HAEMORRHAGE [None]
